FAERS Safety Report 7410785-8 (Version None)
Quarter: 2011Q2

REPORT INFORMATION
  Report Type: 
  Country: None (occurrence: None)
  Receive Date: 20110405
  Receipt Date: 20110321
  Transmission Date: 20111010
  Serious: Yes (Hospitalization)
  Sender: FDA-Public Use
  Company Number: 2011MA002678

PATIENT
  Age: 15 Year
  Sex: Male

DRUGS (1)
  1. TRAMADOL HYDROCHLORIDE [Suspect]
     Indication: PAIN
     Dosage: 25 MG;PO
     Route: 048

REACTIONS (7)
  - PSYCHOTIC DISORDER [None]
  - STATUS EPILEPTICUS [None]
  - CONFUSIONAL STATE [None]
  - HALLUCINATION, AUDITORY [None]
  - DELUSION [None]
  - ALTERED STATE OF CONSCIOUSNESS [None]
  - OVERDOSE [None]
